FAERS Safety Report 10273876 (Version 1)
Quarter: 2014Q3

REPORT INFORMATION
  Report Type: Spontaneous
  Country: ES (occurrence: ES)
  Receive Date: 20140702
  Receipt Date: 20140702
  Transmission Date: 20150326
  Serious: Yes (Hospitalization)
  Sender: FDA-Public Use
  Company Number: ES-GLAXOSMITHKLINE-B1010021A

PATIENT
  Age: 23 Year
  Sex: Male

DRUGS (11)
  1. MYFORTIC [Concomitant]
     Active Substance: MYCOPHENOLATE SODIUM
  2. SINTROM [Concomitant]
     Active Substance: ACENOCOUMAROL
  3. HYDROXYCHLOROQUINE SULPHATE [Concomitant]
     Active Substance: HYDROXYCHLOROQUINE
  4. OMEPRAZOLE. [Concomitant]
     Active Substance: OMEPRAZOLE
     Dates: start: 20130110
  5. ATORVASTATIN [Concomitant]
     Active Substance: ATORVASTATIN
     Dates: start: 20130110
  6. FERROUS GLYCINE SULFATE [Concomitant]
     Active Substance: FERROUS SULFATE\GLYCINE
  7. OMACOR [Suspect]
     Active Substance: OMEGA-3-ACID ETHYL ESTERS
     Indication: DYSLIPIDAEMIA
     Dosage: 1000MG PER DAY
     Route: 048
     Dates: start: 20130109, end: 20130709
  8. DACORTIN [Suspect]
     Active Substance: PREDNISONE
     Indication: RENAL TRANSPLANT
     Dosage: 30MG PER DAY
     Route: 048
     Dates: start: 20130403, end: 20130709
  9. VALSARTAN. [Suspect]
     Active Substance: VALSARTAN
     Indication: HYPERTENSION
     Dosage: 320MG PER DAY
     Route: 048
     Dates: start: 20130109, end: 20130709
  10. ROCALTROL [Concomitant]
     Active Substance: CALCITRIOL
  11. SULFAMETHOXAZOLE AND TRIMETHOPRIM DS [Concomitant]
     Active Substance: SULFAMETHOXAZOLE\TRIMETHOPRIM
     Dates: start: 20130215

REACTIONS (1)
  - Pancreatitis [Recovered/Resolved]

NARRATIVE: CASE EVENT DATE: 20130709
